FAERS Safety Report 5318255-8 (Version None)
Quarter: 2007Q2

REPORT INFORMATION
  Report Type: 
  Country: None (occurrence: None)
  Receive Date: 20070507
  Receipt Date: 20070427
  Transmission Date: 20071010
  Serious: Yes (Other)
  Sender: FDA-Public Use
  Company Number: PHNU2007DE00923

PATIENT
  Sex: Male
  Weight: 81 kg

DRUGS (8)
  1. GLEEVEC [Suspect]
     Indication: CHRONIC MYELOID LEUKAEMIA
     Dosage: 400 MG, QD
     Route: 048
     Dates: start: 20030101
  2. SIMVASTATIN [Concomitant]
     Indication: HYPERLIPIDAEMIA
     Dosage: 20 MG/DAY
     Route: 048
     Dates: start: 20061001
  3. ALLOPURINOL [Concomitant]
     Dosage: 150 MG/DAY
     Route: 048
     Dates: start: 20040101
  4. BLOPRESS [Suspect]
     Dosage: 16 MG/DAY
     Route: 048
     Dates: start: 20040101
  5. BISOPROLOL [Suspect]
     Dosage: 2.5 MG, QD
     Route: 048
     Dates: start: 20040101
  6. ACETYLSALICYLIC ACID SRT [Concomitant]
     Dosage: 100 MG, QD
     Route: 048
     Dates: start: 20040101
  7. TRIAMTERENE AND HYDROCHLOROTHIAZIDE [Suspect]
     Dosage: 1 DF, QD
     Route: 048
     Dates: start: 20061001
  8. EUTHYROX [Concomitant]
     Dosage: 100 UG, QD
     Route: 048
     Dates: start: 20070301

REACTIONS (2)
  - MUSCLE SPASMS [None]
  - THYROID OPERATION [None]
